FAERS Safety Report 7070390-2 (Version None)
Quarter: 2010Q4

REPORT INFORMATION
  Report Type: 
  Country: None (occurrence: None)
  Receive Date: 20101029
  Receipt Date: 20101021
  Transmission Date: 20110411
  Serious: Yes (Hospitalization)
  Sender: FDA-Public Use
  Company Number: JP-BIOGENIDEC-2009BI041066

PATIENT
  Age: 25 Year
  Sex: Female

DRUGS (8)
  1. AVONEX [Suspect]
     Indication: RELAPSING-REMITTING MULTIPLE SCLEROSIS
     Route: 030
     Dates: start: 20090903, end: 20091112
  2. SOLU-MEDROL [Concomitant]
     Indication: MULTIPLE SCLEROSIS RELAPSE
     Dates: start: 20091112, end: 20091214
  3. SOLU-MEDROL [Concomitant]
     Dates: start: 20091224, end: 20091224
  4. BUP-4 [Concomitant]
  5. YODEL-S [Concomitant]
  6. NAIXAN [Concomitant]
     Dates: start: 20090903, end: 20091112
  7. MEXITIL [Concomitant]
  8. PAXIL [Concomitant]

REACTIONS (2)
  - HEPATITIS ACUTE [None]
  - MULTIPLE SCLEROSIS RELAPSE [None]
